FAERS Safety Report 16673158 (Version 3)
Quarter: 2020Q1

REPORT INFORMATION
  Report Type: Spontaneous
  Country: AR (occurrence: AR)
  Receive Date: 20190806
  Receipt Date: 20200207
  Transmission Date: 20200409
  Serious: Yes (Other)
  Sender: FDA-Public Use
  Company Number: AR-ACTELION-A-CH2019-193750

PATIENT
  Sex: Female
  Weight: 75 kg

DRUGS (1)
  1. OPSUMIT [Suspect]
     Active Substance: MACITENTAN
     Indication: PULMONARY ARTERIAL HYPERTENSION
     Dosage: 10 MG, QD
     Route: 048
     Dates: start: 20160201

REACTIONS (4)
  - Catheterisation cardiac [Recovering/Resolving]
  - Nasopharyngitis [Unknown]
  - Chest pain [Unknown]
  - Product supply issue [Unknown]
